FAERS Safety Report 8933022 (Version 1)
Quarter: 2012Q4

REPORT INFORMATION
  Report Type: 
  Country: US (occurrence: US)
  Receive Date: 20121129
  Receipt Date: 20121129
  Transmission Date: 20130627
  Serious: Yes (Hospitalization)
  Sender: FDA-Public Use
  Company Number: PHEH2012US023160

PATIENT
  Age: 69 Year

DRUGS (2)
  1. ZOMETA [Suspect]
     Indication: MULTIPLE MYELOMA
     Dosage: UNK UKN, UNK
  2. VELCADE [Concomitant]
     Indication: MULTIPLE MYELOMA
     Dosage: UNK UKN, UNK

REACTIONS (3)
  - Troponin increased [Unknown]
  - Angina unstable [Unknown]
  - Myocardial infarction [Unknown]
